FAERS Safety Report 16901532 (Version 1)
Quarter: 2019Q4

REPORT INFORMATION
  Report Type: Spontaneous
  Country: US (occurrence: US)
  Receive Date: 20191009
  Receipt Date: 20191009
  Transmission Date: 20200122
  Serious: No
  Sender: FDA-Public Use
  Company Number: US-AMGEN-USASP2019161358

PATIENT
  Age: 65 Year
  Sex: Female

DRUGS (2)
  1. XGEVA [Suspect]
     Active Substance: DENOSUMAB
     Indication: PRODUCT USED FOR UNKNOWN INDICATION
     Dosage: UNK
     Route: 065
  2. IBRANCE [Suspect]
     Active Substance: PALBOCICLIB
     Indication: BREAST CANCER
     Dosage: UNK
     Route: 065

REACTIONS (9)
  - Hot flush [Not Recovered/Not Resolved]
  - Rhinalgia [Unknown]
  - Alopecia [Unknown]
  - Abdominal discomfort [Unknown]
  - Arthralgia [Recovered/Resolved]
  - Toothache [Unknown]
  - Fatigue [Recovering/Resolving]
  - Back pain [Recovered/Resolved]
  - Nausea [Unknown]

NARRATIVE: CASE EVENT DATE: 2019
